FAERS Safety Report 5141735-5 (Version None)
Quarter: 2006Q4

REPORT INFORMATION
  Report Type: 
  Country: None (occurrence: None)
  Receive Date: 20061027
  Receipt Date: 20061010
  Transmission Date: 20070319
  Serious: Yes (Other)
  Sender: FDA-Public Use
  Company Number: DE_051017223

PATIENT
  Age: 1 Day
  Sex: Female

DRUGS (5)
  1. ZYPREXA [Suspect]
     Dosage: TRANSPLACENTAL
     Route: 064
     Dates: end: 20051004
  2. HALDOL [Concomitant]
  3. LORAZEPAM [Concomitant]
  4. CLOZAPINE [Concomitant]
  5. DIAZEPAM [Concomitant]

REACTIONS (6)
  - CAESAREAN SECTION [None]
  - DRUG EXPOSURE DURING PREGNANCY [None]
  - EXTRAPYRAMIDAL DISORDER [None]
  - NEONATAL DISORDER [None]
  - NEONATAL RESPIRATORY DEPRESSION [None]
  - PREMATURE BABY [None]
